FAERS Safety Report 26017749 (Version 2)
Quarter: 2025Q4

REPORT INFORMATION
  Report Type: Spontaneous
  Country: US (occurrence: US)
  Receive Date: 20251110
  Receipt Date: 20251128
  Transmission Date: 20260118
  Serious: No
  Sender: ROCHE
  Company Number: US-ROCHE-10000422322

PATIENT
  Age: 27 Year
  Sex: Female

DRUGS (1)
  1. OCREVUS ZUNOVO [Suspect]
     Active Substance: HYALURONIDASE-OCSQ\OCRELIZUMAB
     Indication: Relapsing multiple sclerosis
     Dosage: 920 MG SUBCUTANEOUS INJECTION EVERY 6 MONTHS
     Route: 058
     Dates: start: 20251017

REACTIONS (6)
  - Pain [Recovered/Resolved]
  - Migraine [Recovered/Resolved]
  - Brain fog [Recovered/Resolved]
  - Vertigo [Recovered/Resolved]
  - Chills [Recovered/Resolved]
  - Ocular discomfort [Recovered/Resolved]

NARRATIVE: CASE EVENT DATE: 20251017
